FAERS Safety Report 17894534 (Version 2)
Quarter: 2021Q2

REPORT INFORMATION
  Report Type: Spontaneous
  Country: US (occurrence: US)
  Receive Date: 20200615
  Receipt Date: 20210629
  Transmission Date: 20210717
  Serious: Yes (Hospitalization, Congenital Anomaly)
  Sender: FDA-Public Use
  Company Number: US-TEVA-2020-US-1467869

PATIENT
  Age: 47 Year
  Sex: Female

DRUGS (1)
  1. AUSTEDO [Suspect]
     Active Substance: DEUTETRABENAZINE
     Indication: HUNTINGTON^S DISEASE
     Route: 065

REACTIONS (2)
  - Hospitalisation [Recovered/Resolved]
  - Huntington^s disease [Not Recovered/Not Resolved]

NARRATIVE: CASE EVENT DATE: 2020
